FAERS Safety Report 13564430 (Version 3)
Quarter: 2017Q2

REPORT INFORMATION
  Report Type: Report from Study
  Country: JP (occurrence: JP)
  Receive Date: 20170519
  Receipt Date: 20170621
  Transmission Date: 20170830
  Serious: Yes (Death)
  Sender: FDA-Public Use
  Company Number: JP-JNJFOC-20170518412

PATIENT
  Age: 72 Year
  Sex: Female
  Weight: 45 kg

DRUGS (17)
  1. MIYA-BM [Concomitant]
     Active Substance: CLOSTRIDIUM BUTYRICUM SPORES STRAIN M-55
     Indication: CONSTIPATION
     Route: 048
     Dates: end: 20170225
  2. PREDONINE [Concomitant]
     Active Substance: PREDNISOLONE
     Indication: MANTLE CELL LYMPHOMA RECURRENT
     Route: 048
     Dates: start: 20170121, end: 20170124
  3. IMBRUVICA [Suspect]
     Active Substance: IBRUTINIB
     Indication: MANTLE CELL LYMPHOMA RECURRENT
     Route: 048
     Dates: start: 20170205, end: 20170210
  4. SODIUM RABEPRAZOLE [Concomitant]
     Active Substance: RABEPRAZOLE SODIUM
     Indication: PROPHYLAXIS
     Route: 048
     Dates: end: 20170225
  5. PREDONINE [Concomitant]
     Active Substance: PREDNISOLONE
     Indication: MANTLE CELL LYMPHOMA RECURRENT
     Route: 065
     Dates: start: 20170215, end: 20170225
  6. IMBRUVICA [Suspect]
     Active Substance: IBRUTINIB
     Indication: MANTLE CELL LYMPHOMA RECURRENT
     Route: 048
     Dates: start: 20170130, end: 20170204
  7. MAGMITT [Concomitant]
     Active Substance: MAGNESIUM OXIDE
     Indication: CONSTIPATION
     Route: 048
     Dates: end: 20170225
  8. BIO-THREE [Concomitant]
     Active Substance: HERBALS
     Indication: CONSTIPATION
     Route: 048
     Dates: start: 20170128, end: 20170225
  9. PREDONINE [Concomitant]
     Active Substance: PREDNISOLONE
     Indication: MANTLE CELL LYMPHOMA RECURRENT
     Route: 065
     Dates: start: 20170222, end: 20170225
  10. IMBRUVICA [Suspect]
     Active Substance: IBRUTINIB
     Indication: MANTLE CELL LYMPHOMA RECURRENT
     Route: 048
     Dates: start: 20170120, end: 20170129
  11. FEBURIC [Concomitant]
     Active Substance: FEBUXOSTAT
     Indication: PROPHYLAXIS
     Route: 048
     Dates: end: 20170225
  12. FLUCONAZOLE. [Concomitant]
     Active Substance: FLUCONAZOLE
     Indication: PROPHYLAXIS
     Route: 048
     Dates: end: 20170225
  13. IMBRUVICA [Suspect]
     Active Substance: IBRUTINIB
     Indication: MANTLE CELL LYMPHOMA RECURRENT
     Route: 048
     Dates: start: 20170211, end: 20170217
  14. PREDONINE [Concomitant]
     Active Substance: PREDNISOLONE
     Indication: MANTLE CELL LYMPHOMA RECURRENT
     Route: 048
     Dates: end: 20170120
  15. FILDESIN [Concomitant]
     Active Substance: VINDESINE SULFATE
     Indication: MANTLE CELL LYMPHOMA RECURRENT
     Route: 065
     Dates: start: 20170218, end: 20170218
  16. PREDONINE [Concomitant]
     Active Substance: PREDNISOLONE
     Indication: MANTLE CELL LYMPHOMA RECURRENT
     Route: 048
     Dates: start: 20170125, end: 20170202
  17. VALACICLOVIR [Concomitant]
     Active Substance: VALACYCLOVIR HYDROCHLORIDE
     Indication: PROPHYLAXIS
     Route: 048
     Dates: end: 20170225

REACTIONS (4)
  - Mass [Fatal]
  - Rash [Recovered/Resolved]
  - Mantle cell lymphoma [Fatal]
  - Abdominal mass [Not Recovered/Not Resolved]

NARRATIVE: CASE EVENT DATE: 20170204
